FAERS Safety Report 10743197 (Version 1)
Quarter: 2015Q1

REPORT INFORMATION
  Report Type: Spontaneous
  Country: ES (occurrence: ES)
  Receive Date: 20150127
  Receipt Date: 20150127
  Transmission Date: 20150721
  Serious: Yes (Other)
  Sender: FDA-Public Use
  Company Number: ES-B.I. PHARMACEUTICALS,INC./RIDGEFIELD-2015-BI-03639ES

PATIENT
  Age: 88 Year
  Sex: Female

DRUGS (2)
  1. MOVALIS [Suspect]
     Active Substance: MELOXICAM
     Indication: BACK PAIN
     Dosage: 15 MG
     Route: 065
     Dates: start: 20141223, end: 20141223
  2. OMEPRAZOL [Concomitant]
     Active Substance: OMEPRAZOLE
     Indication: PRODUCT USED FOR UNKNOWN INDICATION
     Dosage: 20 MG
     Route: 065
     Dates: start: 20141223

REACTIONS (2)
  - Respiratory distress [Not Recovered/Not Resolved]
  - Hyperaemia [Not Recovered/Not Resolved]

NARRATIVE: CASE EVENT DATE: 20141223
